FAERS Safety Report 15637364 (Version 1)
Quarter: 2018Q4

REPORT INFORMATION
  Report Type: Spontaneous
  Country: US (occurrence: US)
  Receive Date: 20181120
  Receipt Date: 20181120
  Transmission Date: 20190205
  Serious: No
  Sender: FDA-Public Use
  Company Number: US-JNJFOC-20180344122

PATIENT
  Age: 49 Year
  Sex: Female

DRUGS (6)
  1. IMBRUVICA [Suspect]
     Active Substance: IBRUTINIB
     Indication: WALDENSTROM^S MACROGLOBULINAEMIA
     Route: 048
     Dates: start: 20180322
  2. CYMBALTA [Concomitant]
     Active Substance: DULOXETINE HYDROCHLORIDE
     Indication: BONE PAIN
     Route: 048
     Dates: start: 2018
  3. CYMBALTA [Concomitant]
     Active Substance: DULOXETINE HYDROCHLORIDE
     Indication: DEPRESSION
     Route: 048
     Dates: start: 2018
  4. VITAMINS                           /00067501/ [Concomitant]
     Active Substance: VITAMINS
  5. IMBRUVICA [Suspect]
     Active Substance: IBRUTINIB
     Indication: WALDENSTROM^S MACROGLOBULINAEMIA
     Route: 048
     Dates: start: 20170421
  6. CYMBALTA [Concomitant]
     Active Substance: DULOXETINE HYDROCHLORIDE
     Indication: MYALGIA
     Route: 048
     Dates: start: 2018

REACTIONS (7)
  - Labelled drug-food interaction medication error [Unknown]
  - Product dose omission [Unknown]
  - Stomatitis [Recovered/Resolved]
  - Tongue discomfort [Unknown]
  - Tongue haemorrhage [Unknown]
  - Mouth haemorrhage [Unknown]
  - Memory impairment [Unknown]

NARRATIVE: CASE EVENT DATE: 20180323
